FAERS Safety Report 11146072 (Version 4)
Quarter: 2015Q3

REPORT INFORMATION
  Report Type: Spontaneous
  Country: CH (occurrence: CH)
  Receive Date: 20150528
  Receipt Date: 20150703
  Transmission Date: 20151125
  Serious: Yes (Hospitalization, Other)
  Sender: FDA-Public Use
  Company Number: CH-JNJFOC-20150513719

PATIENT
  Sex: Female

DRUGS (1)
  1. RISPERDAL CONSTA [Suspect]
     Active Substance: RISPERIDONE
     Indication: SCHIZOAFFECTIVE DISORDER
     Route: 030
     Dates: end: 20060619

REACTIONS (18)
  - Hyperkeratosis [Unknown]
  - Allergy to metals [Unknown]
  - Hospitalisation [Unknown]
  - Hyperprolactinaemia [Not Recovered/Not Resolved]
  - Skin papilloma [Unknown]
  - Tinea pedis [Unknown]
  - Self injurious behaviour [Unknown]
  - Spider vein [Unknown]
  - Scar [Unknown]
  - Eczema [Unknown]
  - General physical condition abnormal [Unknown]
  - Acne pustular [Unknown]
  - Nail dystrophy [Unknown]
  - Diffuse alopecia [Unknown]
  - Suicidal ideation [Unknown]
  - Mental disorder [Unknown]
  - Disease progression [Unknown]
  - Onychomycosis [Unknown]
